FAERS Safety Report 6725751-5 (Version None)
Quarter: 2010Q2

REPORT INFORMATION
  Report Type: 
  Country: None (occurrence: None)
  Receive Date: 20100514
  Receipt Date: 20100503
  Transmission Date: 20101027
  Serious: Yes (Hospitalization)
  Sender: FDA-Public Use
  Company Number: BE-CELGENEUS-013-C5013-10050247

PATIENT
  Sex: Male
  Weight: 71 kg

DRUGS (5)
  1. CC-5013 [Suspect]
     Indication: MULTIPLE MYELOMA
     Route: 048
     Dates: start: 20100427, end: 20100430
  2. VELCADE [Suspect]
     Indication: MULTIPLE MYELOMA
     Route: 051
     Dates: start: 20100427, end: 20100430
  3. MEDROL [Suspect]
     Indication: MULTIPLE MYELOMA
     Route: 048
     Dates: start: 20100427, end: 20100430
  4. ASAFLOW [Concomitant]
     Route: 048
  5. GASTROGRAFIN [Concomitant]
     Indication: CONSTIPATION
     Route: 065
     Dates: start: 20100130

REACTIONS (1)
  - FAECALOMA [None]
